FAERS Safety Report 18288695 (Version 1)
Quarter: 2020Q3

REPORT INFORMATION
  Report Type: Spontaneous
  Country: US (occurrence: US)
  Receive Date: 20200921
  Receipt Date: 20200921
  Transmission Date: 20201103
  Serious: No
  Sender: FDA-Public Use
  Company Number: US-009507513-2009USA006868

PATIENT
  Age: 33 Year
  Sex: Female
  Weight: 126.08 kg

DRUGS (1)
  1. NEXPLANON [Suspect]
     Active Substance: ETONOGESTREL
     Indication: CONTRACEPTION
     Dosage: 1 ROD EVERY 3 YEARS (RIGHT BICEP AREA)
     Dates: start: 2015

REACTIONS (5)
  - Device difficult to use [Not Recovered/Not Resolved]
  - Device deployment issue [Not Recovered/Not Resolved]
  - Weight increased [Unknown]
  - Device issue [Not Recovered/Not Resolved]
  - Incorrect product administration duration [Unknown]

NARRATIVE: CASE EVENT DATE: 2015
